FAERS Safety Report 7583829-0 (Version None)
Quarter: 2011Q2

REPORT INFORMATION
  Report Type: 
  Country: None (occurrence: None)
  Receive Date: 20110630
  Receipt Date: 20110627
  Transmission Date: 20111010
  Serious: Yes (Hospitalization)
  Sender: FDA-Public Use
  Company Number: IT-ROCHE-785982

PATIENT

DRUGS (1)
  1. BEVACIZUMAB [Suspect]
     Dosage: FREQUENCY: UNKNOWN
     Route: 042
     Dates: start: 20100722, end: 20100902

REACTIONS (1)
  - RENAL FAILURE ACUTE [None]
